FAERS Safety Report 8426363-8 (Version None)
Quarter: 2012Q2

REPORT INFORMATION
  Report Type: 
  Country: None (occurrence: None)
  Receive Date: 20120611
  Receipt Date: 20120604
  Transmission Date: 20120825
  Serious: Yes (Hospitalization, Other)
  Sender: FDA-Public Use
  Company Number: US-TEVA-332546USA

PATIENT
  Sex: Female
  Weight: 49.032 kg

DRUGS (18)
  1. PROMETHAZINE [Concomitant]
  2. OXYCODONE HCL [Concomitant]
  3. FERROUS SULFATE TAB [Concomitant]
  4. FIORINAL-C 1/4 [Concomitant]
  5. LEVOTHYROXINE SODIUM [Concomitant]
  6. VICODIN [Concomitant]
  7. MORPHINE [Concomitant]
  8. ACTIQ [Suspect]
     Indication: PAIN
     Route: 002
  9. ANCOVERT [Concomitant]
  10. VITAMINS NOS [Concomitant]
  11. CARISOPRODOL [Concomitant]
  12. ALPRAZOLAM [Concomitant]
  13. ZOLPIDEM TARTRATE [Concomitant]
  14. ESTROGENS CONJUGATED [Concomitant]
  15. HYDROXYZINE HYDROCHLORIDE [Concomitant]
     Indication: BLADDER DISORDER
  16. ACTIQ [Suspect]
     Indication: VOMITING
  17. PANTOPRAZOLE [Concomitant]
  18. NITROFURANTOIN [Concomitant]
     Indication: BLADDER DISORDER

REACTIONS (7)
  - OFF LABEL USE [None]
  - VOMITING [None]
  - ANXIETY [None]
  - BLOOD POTASSIUM DECREASED [None]
  - CRYING [None]
  - PAIN [None]
  - PANCREATITIS [None]
